FAERS Safety Report 8084860-1 (Version None)
Quarter: 2012Q1

REPORT INFORMATION
  Report Type: 
  Country: None (occurrence: None)
  Receive Date: 20120128
  Receipt Date: 20110317
  Transmission Date: 20120608
  Serious: No
  Sender: FDA-Public Use
  Company Number: US-ABBOTT-11P-163-0712696-00

PATIENT
  Sex: Male
  Weight: 108.96 kg

DRUGS (13)
  1. HUMIRA [Suspect]
     Indication: RHEUMATOID ARTHRITIS
     Dosage: LAST INJECTION WAS 01 MAR 2011, BUT DIDN'T HAVE MORE INJECTIONS AVAILABLE AT THIS TIME.
     Route: 058
  2. METHOTREXATE [Concomitant]
     Indication: RHEUMATOID ARTHRITIS
     Route: 050
     Dates: start: 20100901
  3. VITAMIN D [Concomitant]
     Indication: VITAMIN SUPPLEMENTATION
  4. VITACTIV [Concomitant]
     Indication: MINERAL SUPPLEMENTATION
  5. PREDNISONE TAB [Concomitant]
     Indication: PRODUCT USED FOR UNKNOWN INDICATION
  6. MULTI-VITAMIN [Concomitant]
     Indication: VITAMIN SUPPLEMENTATION
  7. OXYCODONE HCL [Concomitant]
     Indication: PAIN
     Dosage: PRN
  8. METHOTREXATE [Concomitant]
     Route: 048
     Dates: end: 20100901
  9. VITAMIN B-12 [Concomitant]
     Indication: VITAMIN SUPPLEMENTATION
  10. HUMIRA [Suspect]
     Route: 058
  11. SULFASALAZINE [Concomitant]
     Indication: PRODUCT USED FOR UNKNOWN INDICATION
  12. METHADONE HCL [Concomitant]
     Indication: PRODUCT USED FOR UNKNOWN INDICATION
  13. AMITRIPTYLINE HCL [Concomitant]
     Indication: INSOMNIA

REACTIONS (5)
  - RESPIRATORY TRACT CONGESTION [None]
  - WHEEZING [None]
  - OROPHARYNGEAL PAIN [None]
  - COUGH [None]
  - FATIGUE [None]
